FAERS Safety Report 8200578 (Version 2)
Quarter: 2012Q4

REPORT INFORMATION
  Report Type: 
  Country: US (occurrence: US)
  Receive Date: 20111026
  Receipt Date: 20120927
  Transmission Date: 20130627
  Serious: Yes (Death, Life-Threatening, Hospitalization)
  Sender: FDA-Public Use
  Company Number: US-GLAXOSMITHKLINE-A0950296A

PATIENT
  Age: 65 Year
  Sex: Male
  Weight: 77.3 kg

DRUGS (15)
  1. MELPHALAN [Suspect]
     Indication: MULTIPLE MYELOMA
     Dosage: 100MGM2 Per day
     Route: 042
     Dates: start: 20110816, end: 20110817
  2. OXYCODONE [Concomitant]
  3. ZOFRAN [Concomitant]
  4. AMLODIPINE [Concomitant]
  5. BENAZAPRIL [Concomitant]
  6. COMPAZINE [Concomitant]
  7. DIFLUCAN [Concomitant]
  8. LEVAQUIN [Concomitant]
  9. LOPERAMIDE [Concomitant]
  10. NEUPOGEN [Concomitant]
  11. FLAGYL [Concomitant]
  12. TRAMADOL [Concomitant]
  13. VALTREX [Concomitant]
  14. CEFEPIME [Concomitant]
  15. VANCOMYCIN [Concomitant]

REACTIONS (8)
  - Febrile neutropenia [Recovering/Resolving]
  - Death [Fatal]
  - Depressed level of consciousness [Unknown]
  - Staphylococcal sepsis [Unknown]
  - Staphylococcus test positive [Unknown]
  - Sepsis [Unknown]
  - Diarrhoea [Unknown]
  - Nausea [Unknown]
